FAERS Safety Report 10047099 (Version 1)
Quarter: 2014Q1

REPORT INFORMATION
  Report Type: Spontaneous
  Country: US (occurrence: US)
  Receive Date: 20140331
  Receipt Date: 20140331
  Transmission Date: 20141002
  Serious: No
  Sender: FDA-Public Use
  Company Number: US-MYLANLABS-2013S1007312

PATIENT
  Age: 57 Year
  Sex: Female
  Weight: 58.06 kg

DRUGS (11)
  1. FENTANYL TRANSDERMAL SYSTEM [Suspect]
     Indication: PAIN
     Dosage: Q72HR
     Route: 062
  2. FENTANYL TRANSDERMAL SYSTEM [Suspect]
     Indication: PAIN
     Dosage: Q72HR
     Route: 062
  3. FENTANYL TRANSDERMAL SYSTEM [Suspect]
     Route: 062
  4. DILAUDID [Concomitant]
     Indication: PAIN
  5. GABAPENTIN [Concomitant]
     Indication: PAIN
  6. CYMBALTA [Concomitant]
     Indication: DEPRESSION
  7. KEPPRA [Concomitant]
     Indication: DEPRESSION
  8. ABILIFY [Concomitant]
     Indication: DEPRESSION
  9. PROMETHAZINE [Concomitant]
     Indication: NAUSEA
  10. FLEXERIL [Concomitant]
     Indication: MUSCLE SPASMS
  11. REQUIP [Concomitant]

REACTIONS (2)
  - Drug withdrawal syndrome [Not Recovered/Not Resolved]
  - Drug dose omission [Not Recovered/Not Resolved]
